FAERS Safety Report 15368703 (Version 1)
Quarter: 2018Q3

REPORT INFORMATION
  Report Type: Spontaneous
  Country: FR (occurrence: FR)
  Receive Date: 20180911
  Receipt Date: 20180911
  Transmission Date: 20181010
  Serious: Yes (Hospitalization)
  Sender: FDA-Public Use
  Company Number: FR-MERCK KGAA-2054809

PATIENT
  Age: 54 Year
  Sex: Female
  Weight: 77 kg

DRUGS (9)
  1. PANTOPRAZOLE [Suspect]
     Active Substance: PANTOPRAZOLE
     Route: 048
  2. VALACICLOVIR [Suspect]
     Active Substance: VALACYCLOVIR HYDROCHLORIDE
     Route: 048
     Dates: start: 201712
  3. LORAZEPAM. [Suspect]
     Active Substance: LORAZEPAM
     Route: 048
  4. NOVOTHYROX [Suspect]
     Active Substance: LEVOTHYROXINE SODIUM
     Indication: HYPOTHYROIDISM
     Route: 048
  5. LOXAPAC [Suspect]
     Active Substance: LOXAPINE
     Route: 048
  6. ESCITALOPRAM OXALATE. [Suspect]
     Active Substance: ESCITALOPRAM OXALATE
     Route: 048
  7. FENOFIBRATE. [Suspect]
     Active Substance: FENOFIBRATE
     Route: 048
  8. BENDAMUSTINE ACCORD [Suspect]
     Active Substance: BENDAMUSTINE
     Route: 042
     Dates: start: 20171212, end: 20180601
  9. RITUXIMAB. [Suspect]
     Active Substance: RITUXIMAB
     Route: 042
     Dates: start: 20171212, end: 20180531

REACTIONS (3)
  - Lymphopenia [Not Recovered/Not Resolved]
  - Agranulocytosis [Not Recovered/Not Resolved]
  - Neutropenia [Not Recovered/Not Resolved]

NARRATIVE: CASE EVENT DATE: 20180215
